FAERS Safety Report 7610484-3 (Version None)
Quarter: 2011Q3

REPORT INFORMATION
  Report Type: 
  Country: None (occurrence: None)
  Receive Date: 20110715
  Receipt Date: 20091122
  Transmission Date: 20111222
  Serious: Yes (Death, Other)
  Sender: FDA-Public Use
  Company Number: US-BAYER-200940638NA

PATIENT
  Age: 77 Year
  Sex: Female

DRUGS (14)
  1. PREDNISONE [Concomitant]
     Dosage: 5 MG, QD
     Route: 048
  2. AZMACORT [Concomitant]
     Dosage: 2 PUFFS TWO TIMES/DAILY, INHALATION
  3. ISOSORBIDE DINITRATE [Concomitant]
     Dosage: 60 MG
     Route: 048
  4. TRASYLOL [Suspect]
     Indication: PRODUCT USED FOR UNKNOWN INDICATION
     Dosage: UNK
     Route: 042
     Dates: start: 20030703
  5. ATACAND HCT [Concomitant]
     Dosage: 32 MG, QD
     Route: 048
  6. SYNTHROID [Concomitant]
     Dosage: 112 MICROGRAMS, QD
     Route: 048
  7. ACETYLSALICYLIC ACID SRT [Concomitant]
     Dosage: 81 MG, QD
     Route: 048
  8. ATENOLOL [Concomitant]
     Dosage: 100 MG, QD
     Route: 048
  9. LASIX [Concomitant]
     Dosage: 40 MG, QD
     Route: 048
  10. MUCOMYST [Concomitant]
     Dosage: 20% VIAL, INHALATION
     Dates: start: 20030627
  11. TRASYLOL [Suspect]
     Indication: CORONARY ARTERY BYPASS
  12. ALBUTEROL INHALER [Concomitant]
     Dosage: 2 PUFFS FOUR TIMES/DAILY AS NEEDED, INHALATION
  13. VISIPAQUE [Concomitant]
     Indication: CATHETERISATION CARDIAC
     Dosage: 180 CC
     Dates: start: 20030702
  14. XANAX [Concomitant]
     Dosage: 0.25 MG, QD
     Route: 048

REACTIONS (13)
  - ANHEDONIA [None]
  - RENAL INJURY [None]
  - STRESS [None]
  - FEAR [None]
  - EMOTIONAL DISTRESS [None]
  - UNEVALUABLE EVENT [None]
  - INJURY [None]
  - RENAL IMPAIRMENT [None]
  - DEATH [None]
  - MULTI-ORGAN FAILURE [None]
  - ANXIETY [None]
  - PAIN [None]
  - RENAL FAILURE [None]
